FAERS Safety Report 7585975-4 (Version None)
Quarter: 2011Q2

REPORT INFORMATION
  Report Type: 
  Country: None (occurrence: None)
  Receive Date: 20110624
  Receipt Date: 20110616
  Transmission Date: 20111010
  Serious: Yes (Other)
  Sender: FDA-Public Use
  Company Number: WAES 1106USA02142

PATIENT
  Age: 72 Year
  Sex: Female
  Weight: 81.1939 kg

DRUGS (6)
  1. FUROSEMIDE [Concomitant]
  2. LYRICA [Suspect]
     Indication: NEUROPATHY PERIPHERAL
     Dosage: 50 MG/TID/PO; 25 MG/BID/PO; 50 MG/BID/PO
     Route: 048
     Dates: start: 20100101
  3. LYRICA [Suspect]
     Indication: NEUROPATHY PERIPHERAL
     Dosage: 50 MG/TID/PO; 25 MG/BID/PO; 50 MG/BID/PO
     Route: 048
     Dates: start: 20100101
  4. LYRICA [Suspect]
     Indication: NEUROPATHY PERIPHERAL
     Dosage: 50 MG/TID/PO; 25 MG/BID/PO; 50 MG/BID/PO
     Route: 048
     Dates: start: 20100101
  5. KEFLEX [Concomitant]
  6. COZAAR [Suspect]
     Indication: BLOOD PRESSURE
     Dosage: 100 MG/DAILY/PO
     Route: 048
     Dates: start: 19860101

REACTIONS (5)
  - BLOOD PRESSURE INCREASED [None]
  - DISORIENTATION [None]
  - OEDEMA PERIPHERAL [None]
  - PAIN [None]
  - CONFUSIONAL STATE [None]
